FAERS Safety Report 16728332 (Version 2)
Quarter: 2019Q3

REPORT INFORMATION
  Report Type: Spontaneous
  Country: CZ (occurrence: CZ)
  Receive Date: 20190822
  Receipt Date: 20190903
  Transmission Date: 20191005
  Serious: Yes (Hospitalization)
  Sender: FDA-Public Use
  Company Number: CZ-B.I. PHARMACEUTICALS,INC./RIDGEFIELD-2019-BI-033579

PATIENT
  Age: 67 Year
  Sex: Male
  Weight: 60 kg

DRUGS (9)
  1. ACTILYSE [Concomitant]
     Active Substance: ALTEPLASE
     Indication: PRODUCT USED FOR UNKNOWN INDICATION
     Route: 042
     Dates: start: 20190811, end: 20190811
  2. SERTRALIN [Concomitant]
     Active Substance: SERTRALINE HYDROCHLORIDE
     Indication: PRODUCT USED FOR UNKNOWN INDICATION
     Route: 065
  3. ZALDIAR [Concomitant]
     Active Substance: ACETAMINOPHEN\TRAMADOL HYDROCHLORIDE
     Indication: PRODUCT USED FOR UNKNOWN INDICATION
     Route: 065
  4. PRAXBIND [Suspect]
     Active Substance: IDARUCIZUMAB
     Indication: PROCOAGULANT THERAPY
     Route: 042
     Dates: start: 20190811, end: 20190811
  5. FURON [Concomitant]
     Active Substance: FUROSEMIDE
     Indication: PRODUCT USED FOR UNKNOWN INDICATION
     Route: 065
  6. BETALOC [Concomitant]
     Active Substance: METOPROLOL TARTRATE
     Indication: PRODUCT USED FOR UNKNOWN INDICATION
     Route: 065
  7. CORDARONE [Concomitant]
     Active Substance: AMIODARONE HYDROCHLORIDE
     Indication: PRODUCT USED FOR UNKNOWN INDICATION
     Route: 065
  8. VEROSPIRON [Concomitant]
     Active Substance: SPIRONOLACTONE
     Indication: PRODUCT USED FOR UNKNOWN INDICATION
     Route: 065
  9. CLEXANE [Concomitant]
     Active Substance: ENOXAPARIN SODIUM
     Indication: PRODUCT USED FOR UNKNOWN INDICATION
     Route: 065

REACTIONS (1)
  - Haemorrhagic transformation stroke [Recovering/Resolving]

NARRATIVE: CASE EVENT DATE: 201908
